FAERS Safety Report 15236639 (Version 1)
Quarter: 2018Q3

REPORT INFORMATION
  Report Type: Spontaneous
  Country: US (occurrence: US)
  Receive Date: 20180803
  Receipt Date: 20180803
  Transmission Date: 20181010
  Serious: No
  Sender: FDA-Public Use
  Company Number: US-PFIZER INC-2018307214

PATIENT
  Age: 14 Year
  Sex: Female

DRUGS (1)
  1. BICILLIN L?A [Suspect]
     Active Substance: PENICILLIN G BENZATHINE
     Dosage: UNK (1.2MILLION UNITS/2ML )
     Route: 030

REACTIONS (1)
  - Injection site pain [Not Recovered/Not Resolved]
